FAERS Safety Report 25342114 (Version 3)
Quarter: 2025Q2

REPORT INFORMATION
  Report Type: Spontaneous
  Country: JP (occurrence: JP)
  Receive Date: 20250521
  Receipt Date: 20250617
  Transmission Date: 20250717
  Serious: Yes (Hospitalization)
  Sender: PFIZER
  Company Number: JP-PFIZER INC-PV202500060215

PATIENT
  Age: 90 Year
  Sex: Female
  Weight: 50.4 kg

DRUGS (9)
  1. AZULFIDINE EN-TABS [Suspect]
     Active Substance: SULFASALAZINE
     Indication: Rheumatic disorder
     Dosage: 500 MG, 2X/DAY
     Route: 048
     Dates: start: 20250306, end: 20250416
  2. CELECOXIB [Suspect]
     Active Substance: CELECOXIB
     Indication: Rheumatic disorder
     Dosage: 100 MG, 2X/DAY
     Route: 048
     Dates: start: 202411, end: 20250416
  3. PREDNISOLONE [Concomitant]
     Active Substance: PREDNISOLONE
     Indication: Polymyalgia rheumatica
     Dates: start: 20241127
  4. PREDNISOLONE [Concomitant]
     Active Substance: PREDNISOLONE
     Dates: start: 20250402
  5. NEXIUM [Concomitant]
     Active Substance: ESOMEPRAZOLE MAGNESIUM
  6. REBAMIPIDE [Concomitant]
     Active Substance: REBAMIPIDE
  7. TRAMCET [Concomitant]
     Active Substance: ACETAMINOPHEN\TRAMADOL
     Indication: Pain
     Dates: start: 20250206
  8. AMLODIPINE [Concomitant]
     Active Substance: AMLODIPINE BESYLATE
     Indication: Hypertension
     Dates: start: 20250111
  9. LYRICA [Concomitant]
     Active Substance: PREGABALIN
     Dates: end: 20250416

REACTIONS (1)
  - Febrile neutropenia [Recovered/Resolved]

NARRATIVE: CASE EVENT DATE: 20250415
